FAERS Safety Report 23371296 (Version 2)
Quarter: 2024Q1

REPORT INFORMATION
  Report Type: Report from Study
  Country: CN (occurrence: CN)
  Receive Date: 20240105
  Receipt Date: 20240117
  Transmission Date: 20240409
  Serious: No
  Sender: FDA-Public Use
  Company Number: CN-PFIZER INC-PV202300210426

PATIENT
  Age: 58 Year
  Sex: Male
  Weight: 66 kg

DRUGS (18)
  1. NIRMATRELVIR\RITONAVIR [Suspect]
     Active Substance: NIRMATRELVIR\RITONAVIR
     Dosage: [NIRMATRELVIR 300MG]/[RITONAVIR 100MG], 2X/DAY (BID)
     Dates: start: 20220417, end: 20220424
  2. HERBALS\MENTHOL [Concomitant]
     Active Substance: HERBALS\MENTHOL
     Indication: Heat therapy
     Dosage: UNK
     Route: 048
     Dates: start: 20220409, end: 20220421
  3. HERBALS\MENTHOL [Concomitant]
     Active Substance: HERBALS\MENTHOL
     Indication: Detoxification
     Dosage: UNK
     Route: 048
     Dates: start: 20220421, end: 20220423
  4. FEI LI KE [Concomitant]
     Indication: Cough
     Dosage: MIXTURE
     Route: 048
     Dates: start: 20220409, end: 20220421
  5. FEI LI KE [Concomitant]
     Dosage: MIXTURE
     Route: 048
     Dates: start: 20220421, end: 20220423
  6. GLUTATHIONE [Concomitant]
     Active Substance: GLUTATHIONE
     Indication: Prophylaxis
     Dosage: UNK
     Route: 048
     Dates: start: 20220410, end: 20220421
  7. GLUTATHIONE [Concomitant]
     Active Substance: GLUTATHIONE
     Dosage: UNK
     Route: 048
     Dates: start: 20220421, end: 2022
  8. PHOSPHOLIPID [Concomitant]
     Active Substance: PHOSPHOLIPID
     Indication: Prophylaxis
     Dosage: UNK
     Route: 048
     Dates: start: 20220410, end: 20220421
  9. PHOSPHOLIPID [Concomitant]
     Active Substance: PHOSPHOLIPID
     Dosage: UNK
     Route: 048
     Dates: start: 20220421, end: 20220423
  10. ORAL REHYDRATION SALTS POWDER (I) [Concomitant]
     Indication: Supplementation therapy
     Dosage: UNK
     Route: 048
     Dates: start: 20220410, end: 2022
  11. SODIUM CHLORIDE [Concomitant]
     Active Substance: SODIUM CHLORIDE
     Indication: Supplementation therapy
     Dosage: UNK
     Route: 048
     Dates: start: 20220410, end: 2022
  12. SODIUM CHLORIDE [Concomitant]
     Active Substance: SODIUM CHLORIDE
     Dosage: UNK
     Route: 048
     Dates: start: 20220413, end: 20220413
  13. CATEQUENTINIB DIHYDROCHLORIDE [Concomitant]
     Active Substance: CATEQUENTINIB DIHYDROCHLORIDE
     Indication: Chemotherapy
     Dosage: UNK
     Route: 048
     Dates: start: 20220411, end: 2022
  14. MONTMORILLONITE [Concomitant]
     Active Substance: MONTMORILLONITE
     Indication: Antidiarrhoeal supportive care
     Dosage: UNK
     Route: 048
     Dates: start: 20220413, end: 2022
  15. MOSAPRIDE CITRATE [Concomitant]
     Active Substance: MOSAPRIDE CITRATE
     Indication: Gastrointestinal disorder
     Dosage: UNK
     Route: 048
     Dates: start: 20220415, end: 2022
  16. MICONAZOLE NITRATE [Concomitant]
     Active Substance: MICONAZOLE NITRATE
     Indication: Antifungal treatment
     Dosage: UNK
     Route: 061
     Dates: start: 20220416, end: 2022
  17. DIAZEPAM [Concomitant]
     Active Substance: DIAZEPAM
     Indication: Sleep disorder
     Dosage: UNK
     Route: 048
     Dates: start: 20220420, end: 2022
  18. INTERFERON [Concomitant]
     Active Substance: INTERFERON
     Indication: Prophylaxis
     Dosage: A2B SPRAY
     Route: 045
     Dates: start: 20220421, end: 2022

REACTIONS (1)
  - Overdose [Unknown]
